FAERS Safety Report 8335113-5 (Version None)
Quarter: 2012Q2

REPORT INFORMATION
  Report Type: 
  Country: None (occurrence: None)
  Receive Date: 20120503
  Receipt Date: 20100518
  Transmission Date: 20120825
  Serious: No
  Sender: FDA-Public Use
  Company Number: US-TEVA-2010002720

PATIENT
  Sex: Female
  Weight: 56.75 kg

DRUGS (5)
  1. ATIVAN [Concomitant]
     Indication: ANXIETY
     Route: 048
     Dates: start: 20030701
  2. GABAPENTIN [Concomitant]
     Indication: NERVOUS SYSTEM DISORDER
     Dosage: 600 MILLIGRAM;
     Route: 048
  3. NASACORT [Concomitant]
     Indication: RHINITIS ALLERGIC
  4. NUVIGIL [Suspect]
     Indication: SOMNOLENCE
     Dosage: 75 MILLIGRAM;
     Route: 048
     Dates: start: 20100510, end: 20100510
  5. PROTONIX [Concomitant]
     Indication: GASTROOESOPHAGEAL REFLUX DISEASE

REACTIONS (2)
  - INSOMNIA [None]
  - HEADACHE [None]
